FAERS Safety Report 5157136-X (Version None)
Quarter: 2006Q4

REPORT INFORMATION
  Report Type: 
  Country: None (occurrence: None)
  Receive Date: 20061115
  Receipt Date: 20061030
  Transmission Date: 20070319
  Serious: Yes (Other)
  Sender: FDA-Public Use
  Company Number: DSA_61269_2006

PATIENT
  Age: 15 Year
  Sex: Male
  Weight: 28.123 kg

DRUGS (3)
  1. DIASTAT [Suspect]
     Indication: CONVULSION
     Dosage: 10 MG PRN RC
     Dates: start: 20061018
  2. TEGRETOL [Concomitant]
  3. DUCOLAX [Concomitant]

REACTIONS (6)
  - CONSTIPATION [None]
  - DEVICE FAILURE [None]
  - DRUG DISPENSING ERROR [None]
  - THERAPY NON-RESPONDER [None]
  - UNDERDOSE [None]
  - WRONG TECHNIQUE IN DRUG USAGE PROCESS [None]
